FAERS Safety Report 5207674-6 (Version None)
Quarter: 2007Q1

REPORT INFORMATION
  Report Type: 
  Country: None (occurrence: None)
  Receive Date: 20070112
  Receipt Date: 20070102
  Transmission Date: 20070707
  Serious: Yes (Death, Other)
  Sender: FDA-Public Use
  Company Number: IE-PFIZER INC-2006156080

PATIENT
  Sex: Male

DRUGS (2)
  1. EPANUTIN [Suspect]
     Indication: CONVULSION
     Route: 048
  2. EPANUTIN [Suspect]
     Route: 042

REACTIONS (3)
  - DISEASE PROGRESSION [None]
  - DYSPHAGIA [None]
  - METASTASES TO CENTRAL NERVOUS SYSTEM [None]
